FAERS Safety Report 13001299 (Version 2)
Quarter: 2016Q4

REPORT INFORMATION
  Report Type: Spontaneous
  Country: US (occurrence: US)
  Receive Date: 20161206
  Receipt Date: 20161208
  Transmission Date: 20170207
  Serious: No
  Sender: FDA-Public Use
  Company Number: US-PFIZER INC-2016563026

PATIENT
  Age: 71 Year
  Sex: Female
  Weight: 81.19 kg

DRUGS (2)
  1. HUMIRA [Concomitant]
     Active Substance: ADALIMUMAB
     Dosage: UNK
  2. IBRANCE [Suspect]
     Active Substance: PALBOCICLIB
     Indication: BONE CANCER
     Dosage: 1 DF, DAILY

REACTIONS (3)
  - Product use issue [Unknown]
  - Vomiting [Unknown]
  - Malaise [Unknown]
